FAERS Safety Report 8571006-6 (Version None)
Quarter: 2012Q3

REPORT INFORMATION
  Report Type: 
  Country: None (occurrence: None)
  Receive Date: 20120806
  Receipt Date: 20120730
  Transmission Date: 20120928
  Serious: No
  Sender: FDA-Public Use
  Company Number: US-ASTRAZENECA-2011SE41450

PATIENT
  Age: 59 Year
  Sex: Female

DRUGS (46)
  1. NEXIUM [Suspect]
     Indication: ULCER
     Dosage: 20 OR 40 MG ONCE A DAY
     Route: 048
     Dates: start: 20010101, end: 20110101
  2. NEXIUM [Suspect]
     Route: 048
     Dates: start: 20050225
  3. CARVEDILOL [Concomitant]
     Indication: BLOOD PRESSURE
  4. SINGULAIR [Concomitant]
     Indication: SINUS DISORDER
  5. PEPCID [Concomitant]
     Dates: start: 19920101, end: 19940101
  6. NEXIUM [Suspect]
     Route: 048
     Dates: start: 20090622
  7. CELLCEPT [Concomitant]
     Indication: MUSCLE DISORDER
     Dosage: 500 MG 2 TABLETS TWICE A DAY
  8. PREMARIN [Concomitant]
  9. DIAZEPAM [Concomitant]
     Indication: DEPRESSION
  10. HYDROCODONE BITARTRATE [Concomitant]
     Indication: BONE PAIN
     Dosage: 5 TO 3.25 MG 6 TO 8 HOURS AS NEEDED
  11. CYCLOBENZAPRINE [Concomitant]
     Route: 048
     Dates: start: 20050202
  12. NEXIUM [Suspect]
     Indication: GASTRIC DISORDER
     Dosage: 20 OR 40 MG ONCE A DAY
     Route: 048
     Dates: start: 20010101, end: 20110101
  13. PRILOSEC [Concomitant]
  14. LIPITOR [Concomitant]
     Indication: BLOOD CHOLESTEROL
  15. ASPIRIN [Concomitant]
     Indication: CARDIAC DISORDER
  16. SUCRALFATE [Concomitant]
     Indication: GASTRITIS PROPHYLAXIS
     Dosage: 1 GM 1 TABLET HALF HOUR BEFORE EACH MEAL
  17. PRISTIQ [Concomitant]
     Indication: POOR QUALITY SLEEP
  18. MESTINON [Concomitant]
     Dates: start: 20061116
  19. NEXIUM [Suspect]
     Route: 048
  20. NEXIUM [Suspect]
     Route: 048
     Dates: start: 20090622
  21. GABAPENTIN [Concomitant]
     Indication: PAIN
     Dosage: 300 MG 3 TABLETS AT BEDTIME
  22. MESTINON [Concomitant]
     Dates: start: 19970301
  23. NEXIUM [Suspect]
     Indication: GASTROOESOPHAGEAL REFLUX DISEASE
     Dosage: 20 OR 40 MG ONCE A DAY
     Route: 048
     Dates: start: 20010101, end: 20110101
  24. NEXIUM [Suspect]
     Route: 048
  25. LORATADINE [Concomitant]
     Indication: SINUS DISORDER
     Route: 048
  26. EFFEXOR [Concomitant]
     Route: 048
     Dates: start: 20041215
  27. ZOLOFT [Concomitant]
     Dates: start: 20061116
  28. NEXIUM [Suspect]
     Route: 048
  29. NEXIUM [Suspect]
     Route: 048
     Dates: start: 20050225
  30. MESTRON [Concomitant]
     Indication: MUSCLE DISORDER
  31. DIAZEPAM [Concomitant]
     Indication: SLEEP DISORDER
  32. FLUCONAZOLE [Concomitant]
     Route: 048
     Dates: start: 20050202
  33. DETROL XL [Concomitant]
     Dosage: EVERY DAY
     Dates: start: 20070308
  34. PRILOSEC [Concomitant]
     Dates: start: 19970301
  35. ZANTAC [Concomitant]
     Dosage: ONCE A DAY
     Dates: start: 19920101, end: 19940101
  36. CELLCEPT [Concomitant]
     Dates: start: 20061116
  37. PREMARIN [Concomitant]
     Indication: HORMONE LEVEL ABNORMAL
     Dates: start: 19970301
  38. PREMARIN [Concomitant]
     Dosage: 625
     Dates: start: 20061116
  39. PANTOPRAZOLE [Concomitant]
     Indication: ABDOMINAL DISCOMFORT
  40. MESTINON [Concomitant]
     Dates: start: 20090622
  41. NEXIUM [Suspect]
     Route: 048
     Dates: start: 20050225
  42. NEXIUM [Suspect]
     Route: 048
     Dates: start: 20090622
  43. FOSAMAX [Concomitant]
     Indication: OSTEOPOROSIS
  44. PREMARIN [Concomitant]
     Dates: start: 20070308
  45. PREMARIN [Concomitant]
     Dates: start: 20090622
  46. DETROL XL [Concomitant]
     Indication: HYPERTONIC BLADDER
     Dates: start: 20061116

REACTIONS (13)
  - DYSPHAGIA [None]
  - VITAMIN D DEFICIENCY [None]
  - GASTRIC DISORDER [None]
  - CHILLS [None]
  - ANKLE FRACTURE [None]
  - PYREXIA [None]
  - OSTEOPOROSIS [None]
  - CALCIUM DEFICIENCY [None]
  - ARTHRITIS [None]
  - POOR QUALITY SLEEP [None]
  - DEPRESSION [None]
  - GRIEF REACTION [None]
  - DYSPEPSIA [None]
